FAERS Safety Report 18763163 (Version 3)
Quarter: 2021Q2

REPORT INFORMATION
  Report Type: Spontaneous
  Country: US (occurrence: US)
  Receive Date: 20210120
  Receipt Date: 20210423
  Transmission Date: 20210717
  Serious: Yes (Other)
  Sender: FDA-Public Use
  Company Number: US-PFIZER INC-2021036560

PATIENT
  Age: 101 Year
  Sex: Female

DRUGS (3)
  1. CEFEPIME HCL [Suspect]
     Active Substance: CEFEPIME HYDROCHLORIDE
     Indication: OSTEOMYELITIS
     Dosage: 2 G, 2X/DAY (2 GRAMS EVERY 12 HOURS)
  2. CEFEPIME HCL [Suspect]
     Active Substance: CEFEPIME HYDROCHLORIDE
     Dosage: UNK
     Route: 042
  3. CEFEPIME HCL [Suspect]
     Active Substance: CEFEPIME HYDROCHLORIDE
     Dosage: 2 G, DAILY (2 GRAMS A DAY)

REACTIONS (5)
  - Renal failure [Recovered/Resolved]
  - Off label use [Unknown]
  - Metabolic disorder [Recovered/Resolved]
  - Myoclonus [Recovered/Resolved]
  - Dyskinesia [Recovered/Resolved]
